FAERS Safety Report 4490083-5 (Version None)
Quarter: 2004Q4

REPORT INFORMATION
  Report Type: 
  Country: None (occurrence: None)
  Receive Date: 20041027
  Receipt Date: 20041021
  Transmission Date: 20050328
  Serious: Yes (Other)
  Sender: FDA-Public Use
  Company Number: 2004236772US

PATIENT
  Sex: Female

DRUGS (1)
  1. SOMAVERT [Suspect]

REACTIONS (2)
  - GROWTH HORMONE-PRODUCING PITUITARY TUMOUR [None]
  - NEOPLASM PROGRESSION [None]
